FAERS Safety Report 6646949-0 (Version None)
Quarter: 2010Q1

REPORT INFORMATION
  Report Type: 
  Country: None (occurrence: None)
  Receive Date: 20100323
  Receipt Date: 20100315
  Transmission Date: 20100710
  Serious: Yes (Other)
  Sender: FDA-Public Use
  Company Number: AU-JNJFOC-20100304832

PATIENT
  Sex: Female

DRUGS (15)
  1. DURAGESIC-100 [Suspect]
     Indication: NERVE COMPRESSION
     Route: 062
  2. DURAGESIC-100 [Suspect]
     Route: 062
  3. DURAGESIC-100 [Suspect]
     Indication: ARTHRALGIA
     Route: 062
  4. DURAGESIC-100 [Suspect]
     Route: 062
  5. DURAGESIC-100 [Suspect]
     Indication: BACK PAIN
     Route: 062
  6. DURAGESIC-100 [Suspect]
     Route: 062
  7. ASPIRIN [Suspect]
     Indication: DRUG USE FOR UNKNOWN INDICATION
  8. AVAPRO [Concomitant]
     Indication: BLOOD PRESSURE
     Route: 065
  9. UNKNOWN MEDICATION [Concomitant]
     Indication: CONVULSION
     Route: 065
  10. FELODUR [Concomitant]
     Indication: BLOOD PRESSURE
     Route: 065
  11. CALTRATE [Concomitant]
     Route: 065
  12. PANADOL OSTEO [Concomitant]
     Route: 065
  13. FISH OIL [Concomitant]
     Route: 065
  14. MAGNESIUM [Concomitant]
     Route: 065
  15. GLUCOSAMINE [Concomitant]
     Route: 065

REACTIONS (5)
  - CARPAL TUNNEL DECOMPRESSION [None]
  - FAECES DISCOLOURED [None]
  - RASH PRURITIC [None]
  - ULCER [None]
  - WEIGHT DECREASED [None]
